FAERS Safety Report 8337874-8 (Version None)
Quarter: 2012Q2

REPORT INFORMATION
  Report Type: 
  Country: None (occurrence: None)
  Receive Date: 20120504
  Receipt Date: 20120424
  Transmission Date: 20120825
  Serious: Yes (Other)
  Sender: FDA-Public Use
  Company Number: US-ELI_LILLY_AND_COMPANY-US201105004282

PATIENT
  Sex: Female

DRUGS (6)
  1. LORTAB [Concomitant]
  2. FORTEO [Suspect]
     Indication: OSTEOPOROSIS
     Dosage: 20 UG, QD
     Route: 065
     Dates: start: 20110309
  3. FORTEO [Suspect]
     Dosage: 20 UG, QD
     Route: 065
  4. FORTEO [Suspect]
     Dosage: 20 UG, QD
     Route: 065
  5. FORTEO [Suspect]
     Dosage: 20 UG, QD
     Route: 065
  6. FORTEO [Suspect]
     Dosage: 20 UG, QD
     Route: 065
     Dates: start: 20111001

REACTIONS (11)
  - BACK PAIN [None]
  - PAIN IN EXTREMITY [None]
  - HEADACHE [None]
  - CARDIAC FLUTTER [None]
  - HEART RATE INCREASED [None]
  - ASTHENIA [None]
  - MUSCULOSKELETAL PAIN [None]
  - FRACTURE [None]
  - INTENTIONAL DRUG MISUSE [None]
  - NEOPLASM MALIGNANT [None]
  - MUSCLE SPASMS [None]
